FAERS Safety Report 6730705-9 (Version None)
Quarter: 2010Q2

REPORT INFORMATION
  Report Type: 
  Country: None (occurrence: None)
  Receive Date: 20100518
  Receipt Date: 20100513
  Transmission Date: 20101027
  Serious: Yes (Hospitalization, Other)
  Sender: FDA-Public Use
  Company Number: US-ELI_LILLY_AND_COMPANY-US201005004037

PATIENT
  Sex: Female

DRUGS (4)
  1. HUMALOG [Suspect]
     Indication: DIABETES MELLITUS
     Dosage: UNK, AS NEEDED
     Dates: start: 20020101
  2. HUMALOG [Suspect]
     Dosage: UNK, AS NEEDED
     Dates: start: 20020101
  3. HUMALOG [Suspect]
     Dosage: UNK, AS NEEDED
     Dates: start: 20020101
  4. LANTUS [Concomitant]
     Dosage: 13 U, UNK

REACTIONS (5)
  - BLOOD GLUCOSE INCREASED [None]
  - CERVICAL VERTEBRAL FRACTURE [None]
  - FEAR [None]
  - GENERAL PHYSICAL CONDITION ABNORMAL [None]
  - HYPOGLYCAEMIC UNCONSCIOUSNESS [None]
